FAERS Safety Report 16777464 (Version 1)
Quarter: 2019Q3

REPORT INFORMATION
  Report Type: Report from Study
  Country: None (occurrence: IT)
  Receive Date: 20190905
  Receipt Date: 20190905
  Transmission Date: 20191005
  Serious: Yes (Death, Other)
  Sender: FDA-Public Use
  Company Number: IT-ABBVIE-19K-083-2913569-00

PATIENT
  Sex: Female

DRUGS (1)
  1. DUODOPA [Suspect]
     Active Substance: CARBIDOPA\LEVODOPA
     Indication: PARKINSON^S DISEASE
     Dosage: MD 7,5(+3)??CR 4,2??ED 2,5
     Route: 050
     Dates: start: 20171120, end: 20190530

REACTIONS (2)
  - Spinal compression fracture [Fatal]
  - Breast cancer metastatic [Fatal]
